FAERS Safety Report 5484988-6 (Version None)
Quarter: 2007Q4

REPORT INFORMATION
  Report Type: 
  Country: None (occurrence: None)
  Receive Date: 20071011
  Receipt Date: 20071003
  Transmission Date: 20080405
  Serious: Yes (Other)
  Sender: FDA-Public Use
  Company Number: FABR-12087

PATIENT
  Sex: Female
  Weight: 113.3993 kg

DRUGS (4)
  1. FABRAZYME [Suspect]
     Indication: FABRY'S DISEASE
     Dates: start: 20061201
  2. BENADRYL [Concomitant]
  3. TYLENOL (CAPLET) [Concomitant]
  4. INCORPORATED [Concomitant]

REACTIONS (7)
  - DISEASE RECURRENCE [None]
  - FATIGUE [None]
  - MALAISE [None]
  - PERITONEAL DIALYSIS [None]
  - RENAL FAILURE [None]
  - RENAL PAIN [None]
  - STOMACH DISCOMFORT [None]
